FAERS Safety Report 14677865 (Version 1)
Quarter: 2018Q1

REPORT INFORMATION
  Report Type: Report from Study
  Country: US (occurrence: US)
  Receive Date: 20180326
  Receipt Date: 20180326
  Transmission Date: 20180509
  Serious: Yes (Hospitalization, Other)
  Sender: FDA-Public Use
  Company Number: US-BRISTOL-MYERS SQUIBB COMPANY-BMS-2015-083664

PATIENT
  Age: 76 Year
  Sex: Male
  Weight: 98 kg

DRUGS (18)
  1. CARVEDILOL. [Concomitant]
     Active Substance: CARVEDILOL
     Indication: ARRHYTHMIA
     Dosage: UNK
     Route: 065
     Dates: start: 20141219
  2. MELATONIN [Concomitant]
     Active Substance: MELATONIN
     Indication: INSOMNIA
     Dosage: UNK
     Route: 065
     Dates: start: 2010
  3. FUROSEMIDE. [Concomitant]
     Active Substance: FUROSEMIDE
     Indication: CARDIAC FAILURE CONGESTIVE
     Dosage: UNK
     Route: 065
     Dates: start: 20150330
  4. BENAZEPRIL [Concomitant]
     Active Substance: BENAZEPRIL HYDROCHLORIDE
     Indication: CARDIAC FAILURE CONGESTIVE
     Dosage: UNK
     Route: 065
     Dates: start: 20141217
  5. NEURONTIN [Concomitant]
     Active Substance: GABAPENTIN
     Indication: OSTEOARTHRITIS
     Dosage: UNK
     Route: 065
     Dates: start: 20150416
  6. AMIODARONE [Concomitant]
     Active Substance: AMIODARONE
     Indication: ATRIAL FIBRILLATION
     Dosage: UNK
     Route: 065
     Dates: start: 20150826
  7. PROBIOTIC                          /06395501/ [Concomitant]
     Active Substance: BIFIDOBACTERIUM ANIMALIS LACTIS
     Indication: ADVERSE EVENT
     Dosage: UNK
     Route: 065
     Dates: start: 2005
  8. TRAZODONE [Concomitant]
     Active Substance: TRAZODONE HYDROCHLORIDE
     Indication: INSOMNIA
     Dosage: UNK
     Route: 065
     Dates: start: 201408
  9. CLARITIN [Concomitant]
     Active Substance: LORATADINE
     Indication: HYPERSENSITIVITY
     Dosage: UNK
     Route: 065
     Dates: start: 2010
  10. NAPROXEN. [Concomitant]
     Active Substance: NAPROXEN
     Indication: OSTEOARTHRITIS
     Dosage: UNK
     Route: 065
     Dates: start: 20150416
  11. BUPROPION HYDROCHLORIDE. [Concomitant]
     Active Substance: BUPROPION HYDROCHLORIDE
     Indication: DEPRESSION
     Dosage: UNK
     Route: 065
     Dates: start: 20140725
  12. CHONDROITIN [Concomitant]
     Active Substance: CHONDROITIN
     Indication: ADVERSE EVENT
     Dosage: UNK
     Route: 065
     Dates: start: 2005
  13. B COMPLEX                          /00322001/ [Concomitant]
     Active Substance: CALCIUM PANTOTHENATE\CYANOCOBALAMIN\NIACINAMIDE\PYRIDOXINE HYDROCHLORIDE\RIBOFLAVIN\THIAMINE HYDROCHLORIDE
     Indication: ADVERSE EVENT
     Dosage: UNK
     Route: 065
     Dates: start: 2005
  14. APIXABAN [Suspect]
     Active Substance: APIXABAN
     Indication: PRODUCT USED FOR UNKNOWN INDICATION
     Dosage: UNK
     Route: 065
     Dates: start: 20150923
  15. ACETAMINOPHEN. [Concomitant]
     Active Substance: ACETAMINOPHEN
     Indication: MUSCULOSKELETAL PAIN
     Dosage: UNK
     Route: 065
     Dates: start: 201403
  16. VITAMIN C [Concomitant]
     Active Substance: ASCORBIC ACID
     Indication: ADVERSE EVENT
     Dosage: UNK
     Route: 065
     Dates: start: 1995
  17. APIXABAN [Suspect]
     Active Substance: APIXABAN
     Indication: COAGULOPATHY
     Dosage: 5 MG, UNK
     Route: 048
     Dates: start: 20150703, end: 20150917
  18. VITAMIN D3 [Concomitant]
     Active Substance: CHOLECALCIFEROL
     Indication: ADVERSE EVENT
     Dosage: UNK
     Route: 065
     Dates: start: 2012

REACTIONS (6)
  - Facial bones fracture [Recovered/Resolved]
  - Coagulopathy [Recovered/Resolved]
  - Fall [Recovered/Resolved with Sequelae]
  - Epistaxis [Recovered/Resolved]
  - Craniocerebral injury [Recovered/Resolved]
  - Concussion [Recovered/Resolved]

NARRATIVE: CASE EVENT DATE: 20150917
